FAERS Safety Report 12746533 (Version 1)
Quarter: 2016Q3

REPORT INFORMATION
  Report Type: Spontaneous
  Country: KR (occurrence: KR)
  Receive Date: 20160915
  Receipt Date: 20160915
  Transmission Date: 20161109
  Serious: Yes (Other)
  Sender: FDA-Public Use
  Company Number: KR-PFIZER INC-2016429582

PATIENT
  Sex: Female

DRUGS (1)
  1. XALATAN [Suspect]
     Active Substance: LATANOPROST
     Indication: GLAUCOMA
     Dosage: UNK
     Dates: start: 2015, end: 20160910

REACTIONS (7)
  - Asthenopia [Unknown]
  - Palpitations [Unknown]
  - Vision blurred [Recovering/Resolving]
  - Suicidal ideation [Unknown]
  - Skin tightness [Unknown]
  - Dry eye [Unknown]
  - Depression [Recovering/Resolving]
